FAERS Safety Report 8792426 (Version 1)
Quarter: 2012Q4

REPORT INFORMATION
  Report Type: 
  Country: US (occurrence: US)
  Receive Date: 20120918
  Receipt Date: 20120918
  Transmission Date: 20130627
  Serious: Yes (Disabling, Other)
  Sender: FDA-Public Use
  Company Number: US-PFIZER INC-2012226220

PATIENT
  Age: 49 Year
  Sex: Male
  Weight: 80.73 kg

DRUGS (1)
  1. VIAGRA [Suspect]
     Indication: ERECTILE DYSFUNCTION
     Dosage: 100 mg, as needed
     Route: 048
     Dates: start: 2012, end: 2012

REACTIONS (1)
  - Optic ischaemic neuropathy [Not Recovered/Not Resolved]
